FAERS Safety Report 14189347 (Version 4)
Quarter: 2020Q2

REPORT INFORMATION
  Report Type: Spontaneous
  Country: US (occurrence: US)
  Receive Date: 20171115
  Receipt Date: 20200512
  Transmission Date: 20200713
  Serious: Yes (Other)
  Sender: FDA-Public Use
  Company Number: PHEH2017US036460

PATIENT
  Age: 77 Year
  Sex: Female

DRUGS (3)
  1. TASIGNA [Suspect]
     Active Substance: NILOTINIB
     Indication: CHRONIC MYELOID LEUKAEMIA
     Dosage: 400 MG, QD
     Route: 048
     Dates: start: 200406, end: 201110
  2. GLEEVEC [Suspect]
     Active Substance: IMATINIB MESYLATE
     Indication: CHRONIC MYELOID LEUKAEMIA
     Route: 065
  3. BOSUTINIB [Suspect]
     Active Substance: BOSUTINIB
     Indication: CHRONIC MYELOID LEUKAEMIA
     Route: 065

REACTIONS (39)
  - Delirium [Unknown]
  - Emotional distress [Unknown]
  - Cataract [Unknown]
  - Pneumonia [Unknown]
  - Myocardial infarction [Unknown]
  - Neuropathy peripheral [Unknown]
  - Anaemia [Unknown]
  - Anxiety [Unknown]
  - Encephalopathy [Unknown]
  - Respiratory failure [Unknown]
  - Ulcer [Unknown]
  - Injury [Unknown]
  - Arthritis [Unknown]
  - Dizziness [Unknown]
  - Peripheral vascular disorder [Unknown]
  - Syncope [Unknown]
  - Dehydration [Unknown]
  - Vascular graft occlusion [Unknown]
  - Lung abscess [Unknown]
  - Meningitis [Unknown]
  - Acute kidney injury [Unknown]
  - Sepsis [Unknown]
  - Chronic obstructive pulmonary disease [Unknown]
  - Peripheral arterial occlusive disease [Unknown]
  - Back pain [Unknown]
  - Chest pain [Unknown]
  - Atelectasis [Unknown]
  - Gastrooesophageal reflux disease [Unknown]
  - Osteoporosis [Unknown]
  - Irritable bowel syndrome [Unknown]
  - Disorientation [Unknown]
  - Hyperlipidaemia [Unknown]
  - Bronchitis [Unknown]
  - Headache [Unknown]
  - Depression [Unknown]
  - Hypertension [Unknown]
  - Hyponatraemia [Unknown]
  - Diabetes mellitus [Unknown]
  - Mononeuropathy [Unknown]

NARRATIVE: CASE EVENT DATE: 2011
